FAERS Safety Report 24326028 (Version 1)
Quarter: 2024Q3

REPORT INFORMATION
  Report Type: Spontaneous
  Country: JP (occurrence: JP)
  Receive Date: 20240917
  Receipt Date: 20240917
  Transmission Date: 20241017
  Serious: Yes (Hospitalization)
  Sender: SANDOZ
  Company Number: JP-MLMSERVICE-20240905-PI180179-00145-1

PATIENT
  Age: 21 Year
  Sex: Female
  Weight: 57 kg

DRUGS (11)
  1. FENTANYL [Suspect]
     Active Substance: FENTANYL\FENTANYL CITRATE
     Indication: Product used for unknown indication
     Dosage: 100.000UG
     Route: 065
     Dates: start: 202204
  2. LIDOCAINE [Suspect]
     Active Substance: LIDOCAINE
     Indication: General anaesthesia
     Dosage: 100.000MG
     Route: 065
     Dates: start: 202204
  3. MIDAZOLAM [Suspect]
     Active Substance: MIDAZOLAM
     Indication: Maintenance of anaesthesia
     Dosage: 2.000MG
     Route: 065
     Dates: start: 202204
  4. PROPOFOL [Suspect]
     Active Substance: PROPOFOL
     Indication: General anaesthesia
     Dosage: 150.000MG
     Route: 065
     Dates: start: 202204
  5. ROCURONIUM [Suspect]
     Active Substance: ROCURONIUM BROMIDE
     Indication: General anaesthesia
     Dosage: 50.000MG
     Route: 065
     Dates: start: 202204
  6. SEVOFLURANE [Suspect]
     Active Substance: SEVOFLURANE
     Indication: Anaesthesia reversal
     Dosage: UNK
     Route: 065
     Dates: start: 202204
  7. ACETAMINOPHEN [Concomitant]
     Active Substance: ACETAMINOPHEN
     Indication: Product used for unknown indication
     Dosage: 1000.000MG
     Route: 065
     Dates: start: 202204
  8. DEXAMETHASONE [Concomitant]
     Active Substance: DEXAMETHASONE
     Indication: General anaesthesia
     Dosage: 8.000MG
     Route: 065
     Dates: start: 202204
  9. KETOROLAC [Concomitant]
     Active Substance: KETOROLAC TROMETHAMINE
     Indication: Product used for unknown indication
     Dosage: 30.000MG
     Route: 065
     Dates: start: 202204
  10. ONDANSETRON [Concomitant]
     Active Substance: ONDANSETRON
     Indication: General anaesthesia
     Dosage: 4.000MG
     Route: 065
     Dates: start: 202204
  11. SUGAMMADEX [Concomitant]
     Active Substance: SUGAMMADEX
     Indication: Product used for unknown indication
     Dosage: 200.000MG
     Route: 065
     Dates: start: 202204

REACTIONS (1)
  - Language disorder [Recovered/Resolved]

NARRATIVE: CASE EVENT DATE: 20220401
